FAERS Safety Report 8979358 (Version 1)
Quarter: 2012Q4

REPORT INFORMATION
  Report Type: 
  Country: US (occurrence: US)
  Receive Date: 20121221
  Receipt Date: 20121221
  Transmission Date: 20130627
  Serious: Yes (Other)
  Sender: FDA-Public Use
  Company Number: US-UCBSA-073409

PATIENT
  Age: 42 None
  Sex: Male

DRUGS (16)
  1. KEPPRA XR [Suspect]
     Dates: start: 2011, end: 2012
  2. KEPPRA XR [Suspect]
     Dosage: 2000 MG
     Dates: start: 201206, end: 2012
  3. KEPPRA XR [Suspect]
     Dosage: 2500 MG
     Dates: start: 2012
  4. GENERIC KEPPRA [Concomitant]
     Dosage: 2000 MG
     Dates: start: 2012, end: 2012
  5. ALOPURINOL [Concomitant]
     Indication: GOUT
  6. CITALOPRAM [Concomitant]
     Indication: DEPRESSION
     Dosage: 20 MG
  7. DOCUSATE [Concomitant]
     Dosage: 100 MG
  8. DRISDOL [Concomitant]
     Dosage: 50000 UNITS
  9. HYDROLIZIN [Concomitant]
     Indication: HYPERTENSION
  10. VICODAN [Concomitant]
     Dosage: 1-2 TABLETS EVERY 6 HOURS
  11. LEVOTHYROXINE [Concomitant]
  12. PROCARDIA XL [Concomitant]
  13. NORFLEX [Concomitant]
     Dosage: 100 EXTENDED RELEASE BID
  14. PROTONIX [Concomitant]
  15. PRORENAL VITAL [Concomitant]
     Dosage: 1 QD
  16. COMBIVENT [Concomitant]
     Dosage: 18-103 PUFFS

REACTIONS (5)
  - Convulsion [Unknown]
  - Wound [Recovered/Resolved]
  - Depression [Not Recovered/Not Resolved]
  - Weight increased [Recovering/Resolving]
  - Weight decreased [Unknown]
